FAERS Safety Report 23141569 (Version 1)
Quarter: 2023Q4

REPORT INFORMATION
  Report Type: Spontaneous
  Country: FI (occurrence: FI)
  Receive Date: 20231103
  Receipt Date: 20231103
  Transmission Date: 20240109
  Serious: Yes (Hospitalization, Other)
  Sender: FDA-Public Use
  Company Number: FI-CELLTRION INC.-2023FI021043

PATIENT

DRUGS (26)
  1. YUFLYMA [Suspect]
     Active Substance: ADALIMUMAB-AATY
     Indication: Rheumatoid arthritis
     Route: 058
  2. MELATONIN [Concomitant]
     Active Substance: MELATONIN
     Dosage: 3,MG,AS NECESSARY
     Dates: start: 20220228
  3. LACTULOSE [Concomitant]
     Active Substance: LACTULOSE
     Dosage: 15-30,MG,AS NECESSARY
     Dates: start: 20221018
  4. ATORVASTATIN [Concomitant]
     Active Substance: ATORVASTATIN
     Dosage: 40,MG,DAILY
     Dates: start: 20230915
  5. FOLIC ACID [Concomitant]
     Active Substance: FOLIC ACID
     Dosage: 5,MG,WEEKLY
  6. EPIPEN [Concomitant]
     Active Substance: EPINEPHRINE
     Dosage: ,,AS NECESSARY
     Dates: start: 20221117
  7. PANTOPRAZOLE SODIUM [Concomitant]
     Active Substance: PANTOPRAZOLE SODIUM
     Dosage: 40,MG,DAILY
     Dates: start: 20160819
  8. METHOTREXATE [Concomitant]
     Active Substance: METHOTREXATE
     Dosage: UNK
     Dates: start: 20171124
  9. MOVICOL [Concomitant]
     Active Substance: POLYETHYLENE GLYCOL 3350\POTASSIUM CHLORIDE\SODIUM BICARBONATE\SODIUM CHLORIDE
     Dosage: ,,AS NECESSARY
  10. CALCIUM\CHOLECALCIFEROL [Concomitant]
     Active Substance: CALCIUM\CHOLECALCIFEROL
     Dosage: 2,DF,DAILY
     Dates: start: 20220225
  11. B12 VITAMIINI RATIOPHARM [Concomitant]
     Dosage: 1,MG,DAILY
     Dates: start: 20220525
  12. PANADOL [Concomitant]
     Active Substance: ACETAMINOPHEN
     Dosage: 2660,MG,DAILY
     Dates: start: 20200331
  13. VENTOLIN [Concomitant]
     Active Substance: ALBUTEROL SULFATE
     Dosage: 800-2400,UG,AS NECESSARY
     Dates: start: 20220114
  14. SUMATRIPTAN [Concomitant]
     Active Substance: SUMATRIPTAN
     Dosage: 20,MG,AS NECESSARY
  15. LAMICTAL [Concomitant]
     Active Substance: LAMOTRIGINE
     Dosage: UNK
     Dates: start: 20230823
  16. ACRIVASTINE\PSEUDOEPHEDRINE HYDROCHLORIDE [Concomitant]
     Active Substance: ACRIVASTINE\PSEUDOEPHEDRINE HYDROCHLORIDE
     Dosage: ,,AS NECESSARY
     Dates: start: 20220928
  17. CANDESARTAN [Concomitant]
     Active Substance: CANDESARTAN
     Dosage: UNK
     Dates: start: 20210129
  18. AGOMELATINE RATIOPHARM [Concomitant]
     Dosage: 25,MG,DAILY
     Dates: start: 20220909
  19. QUETIAPINE FUMARATE [Concomitant]
     Active Substance: QUETIAPINE FUMARATE
     Dosage: 100-300,MG,DAILY
     Dates: start: 20220907
  20. DULOXETIN STADA [Concomitant]
     Dosage: 30,MG,DAILY
     Dates: start: 20180606
  21. DULOXETIN STADA [Concomitant]
     Dosage: 60,MG,DAILY
  22. FLUTICASONE FUROATE [Concomitant]
     Active Substance: FLUTICASONE FUROATE
     Dosage: 55,UG,DAILY
     Dates: start: 20190225
  23. BUDESONIDE\FORMOTEROL FUMARATE [Concomitant]
     Active Substance: BUDESONIDE\FORMOTEROL FUMARATE
     Dosage: 2,DF,AS NECESSARY
  24. TIZANIDINE [Concomitant]
     Active Substance: TIZANIDINE
     Dosage: 2,MG,AS NECESSARY
  25. CLOPIDOGREL HYDROCHLORIDE [Concomitant]
     Active Substance: CLOPIDOGREL HYDROCHLORIDE
     Dosage: 75,MG,DAILY
     Dates: start: 20220930
  26. LEVOMEPROMAZINE MALEATE [Concomitant]
     Active Substance: LEVOMEPROMAZINE MALEATE
     Dosage: 100,MG,DAILY
     Dates: start: 20220907

REACTIONS (6)
  - Aphonia [Unknown]
  - Dysphonia [Unknown]
  - Dizziness [Unknown]
  - Nausea [Unknown]
  - Dry mouth [Unknown]
  - Anaphylactic reaction [Unknown]

NARRATIVE: CASE EVENT DATE: 20230918
